FAERS Safety Report 15988443 (Version 1)
Quarter: 2019Q1

REPORT INFORMATION
  Report Type: Spontaneous
  Country: FR (occurrence: FR)
  Receive Date: 20190221
  Receipt Date: 20190221
  Transmission Date: 20190418
  Serious: Yes (Hospitalization)
  Sender: FDA-Public Use
  Company Number: FR-ACCORD-108198

PATIENT
  Age: 66 Year
  Sex: Male
  Weight: 84 kg

DRUGS (8)
  1. OXALIPLATINE ACCORD [Suspect]
     Active Substance: OXALIPLATIN
     Indication: RECTAL CANCER STAGE IV
     Dosage: STRENGTH 5 MG / ML
     Route: 042
     Dates: start: 20180517, end: 20180517
  2. IRINOTECAN MEDAC [Suspect]
     Active Substance: IRINOTECAN
     Indication: RECTAL CANCER STAGE IV
     Dosage: STRENGTH 20 MG / ML
     Route: 042
     Dates: start: 20180517, end: 20180517
  3. ZYMAD [Concomitant]
     Active Substance: CHOLECALCIFEROL
  4. FLUOROURACIL ACCORD [Suspect]
     Active Substance: FLUOROURACIL
     Indication: RECTAL CANCER STAGE IV
     Dosage: STRENGTH 50 MG / ML
     Route: 042
     Dates: start: 20180517, end: 20180517
  5. LANTUS [Concomitant]
     Active Substance: INSULIN GLARGINE
  6. RAMIPRIL. [Concomitant]
     Active Substance: RAMIPRIL
  7. XATRAL [Concomitant]
     Active Substance: ALFUZOSIN
  8. PARACETAMOL [Concomitant]
     Active Substance: ACETAMINOPHEN

REACTIONS (3)
  - Fatigue [Recovered/Resolved]
  - Diarrhoea [Recovered/Resolved]
  - Vomiting [Recovered/Resolved]

NARRATIVE: CASE EVENT DATE: 20180519
